FAERS Safety Report 7801840-9 (Version None)
Quarter: 2011Q4

REPORT INFORMATION
  Report Type: 
  Country: None (occurrence: None)
  Receive Date: 20111005
  Receipt Date: 20110921
  Transmission Date: 20120403
  Serious: Yes (Hospitalization)
  Sender: FDA-Public Use
  Company Number: MSER20110043

PATIENT
  Age: 70 Year
  Sex: Female

DRUGS (4)
  1. CORTICOSTEROIDS (LOCAL) (CORTICOSTEROIDS) (UNKNOWN) [Suspect]
     Indication: PSORIASIS
  2. NAPROXEN (NAPROXEN) (UNKNOWN) (NAPROXEN) [Concomitant]
  3. OMEPRAZOLE (OMEPRAZOLE) (UNKNOWN) (OMEPRAZOLE) [Concomitant]
  4. MORPHINE SULFATE [Suspect]
     Indication: BACK PAIN
     Dosage: 10 MG, ORAL
     Route: 048

REACTIONS (1)
  - ACUTE GENERALISED EXANTHEMATOUS PUSTULOSIS [None]
